FAERS Safety Report 4999782-X (Version None)
Quarter: 2006Q2

REPORT INFORMATION
  Report Type: 
  Country: None (occurrence: None)
  Receive Date: 20060511
  Receipt Date: 20050606
  Transmission Date: 20061013
  Serious: Yes (Hospitalization, Disabling)
  Sender: FDA-Public Use
  Company Number: US-MERCK-0506USA01036

PATIENT
  Age: 59 Year
  Sex: Female
  Weight: 75 kg

DRUGS (9)
  1. VIOXX [Suspect]
     Indication: FIBROMYALGIA
     Route: 048
     Dates: start: 20000712, end: 20020705
  2. VIOXX [Suspect]
     Indication: ARTHRALGIA
     Route: 048
     Dates: start: 20000712, end: 20020705
  3. POTASSIUM CHLORIDE [Concomitant]
     Route: 048
     Dates: start: 19990104, end: 20021010
  4. FUROSEMIDE [Concomitant]
     Route: 048
     Dates: start: 19990104, end: 20050513
  5. VENTOLIN [Concomitant]
     Route: 055
     Dates: start: 19990209, end: 20030801
  6. VANCERIL [Concomitant]
     Route: 055
     Dates: start: 19990228, end: 20020907
  7. K-DUR 10 [Concomitant]
     Route: 048
     Dates: start: 20020415
  8. POTASSIUM CHLORIDE [Concomitant]
     Route: 048
     Dates: start: 20020204, end: 20050513
  9. HUMIBID [Concomitant]
     Route: 048
     Dates: start: 20031209, end: 20050222

REACTIONS (12)
  - CARDIAC FAILURE CONGESTIVE [None]
  - CAROTID ARTERY STENOSIS [None]
  - CEREBROVASCULAR ACCIDENT [None]
  - CONSTIPATION [None]
  - DIARRHOEA [None]
  - DIASTOLIC DYSFUNCTION [None]
  - FIBROMYALGIA [None]
  - HYPERTENSIVE HEART DISEASE [None]
  - INSOMNIA [None]
  - OPEN WOUND [None]
  - PAIN IN EXTREMITY [None]
  - STASIS DERMATITIS [None]
